FAERS Safety Report 9771936 (Version 2)
Quarter: 2014Q1

REPORT INFORMATION
  Report Type: Report from Study
  Country: US (occurrence: US)
  Receive Date: 20131219
  Receipt Date: 20140103
  Transmission Date: 20141002
  Serious: Yes (Death)
  Sender: FDA-Public Use
  Company Number: PHEH2013US025940

PATIENT
  Sex: Female

DRUGS (1)
  1. RECLAST [Suspect]
     Dosage: 5 MG, PER 100 ML
     Route: 042

REACTIONS (2)
  - Breast cancer metastatic [Fatal]
  - Chronic obstructive pulmonary disease [Fatal]
